FAERS Safety Report 7116895-7 (Version None)
Quarter: 2010Q4

REPORT INFORMATION
  Report Type: 
  Country: None (occurrence: None)
  Receive Date: 20101122
  Receipt Date: 20101112
  Transmission Date: 20110411
  Serious: Yes (Hospitalization)
  Sender: FDA-Public Use
  Company Number: GB-PFIZER INC-2007327758

PATIENT
  Age: 28 Year
  Sex: Male

DRUGS (3)
  1. PARACETAMOL [Suspect]
     Indication: TOOTHACHE
     Dosage: 7 G, IN 7 HOUR
     Route: 048
  2. IBUPROFEN [Suspect]
     Indication: TOOTHACHE
     Dosage: 2.4 G, IN 11 HOUR
     Route: 048
  3. IBUPROFEN [Suspect]
     Dosage: 600 MG, 3X/DAY

REACTIONS (3)
  - ABSCESS [None]
  - ACCIDENTAL OVERDOSE [None]
  - PULPITIS DENTAL [None]
